FAERS Safety Report 7358915-0 (Version None)
Quarter: 2011Q1

REPORT INFORMATION
  Report Type: 
  Country: None (occurrence: None)
  Receive Date: 20110317
  Receipt Date: 20110309
  Transmission Date: 20110831
  Serious: Yes (Death)
  Sender: FDA-Public Use
  Company Number: JP-BRISTOL-MYERS SQUIBB COMPANY-15587561

PATIENT
  Age: 55 Year
  Sex: Male
  Weight: 64 kg

DRUGS (10)
  1. SEROQUEL [Concomitant]
     Indication: SCHIZOPHRENIA
     Dosage: 1DF=500 TO 600MG,ALSO TAKEN 100 MG TABS FROM 02OCT2008-03OCT2010.
     Route: 048
     Dates: start: 20081002, end: 20101003
  2. TRAZODONE HCL [Concomitant]
     Dosage: TABS
     Dates: start: 20080410, end: 20101003
  3. RISPERDAL [Concomitant]
     Indication: SCHIZOPHRENIA
     Dosage: 1DF=1 TO 2MG,ORAL LIQUID,02OCT2008-03OCT2010.
     Route: 048
     Dates: start: 20081002, end: 20101003
  4. BIOFERMIN [Concomitant]
     Dosage: ORAL POWDER
     Route: 048
     Dates: start: 20090604, end: 20101003
  5. HALCION [Concomitant]
     Dosage: TABS
     Dates: start: 20080110, end: 20101003
  6. BENZALIN [Concomitant]
     Dosage: TABS
     Dates: start: 20060123, end: 20101003
  7. NEOMALLERMIN-TR [Concomitant]
     Dosage: TABS
     Dates: start: 20071227, end: 20101003
  8. UBRETID [Concomitant]
     Dosage: TABS
     Dates: start: 20100304, end: 20101003
  9. ABILIFY [Suspect]
     Indication: SCHIZOPHRENIA
     Route: 048
     Dates: start: 20060620, end: 20101003
  10. HIBERNA [Concomitant]
     Dosage: TABS
     Dates: start: 20100304, end: 20101003

REACTIONS (1)
  - SUDDEN DEATH [None]
